FAERS Safety Report 24876292 (Version 2)
Quarter: 2025Q2

REPORT INFORMATION
  Report Type: Report from Study
  Country: CA (occurrence: CA)
  Receive Date: 20250123
  Receipt Date: 20250422
  Transmission Date: 20250717
  Serious: Yes (Other)
  Sender: REGENERON
  Company Number: CA-BAYER-2025A009336

PATIENT
  Age: 48 Year
  Sex: Female

DRUGS (2)
  1. EYLEA [Suspect]
     Active Substance: AFLIBERCEPT
     Indication: Diabetic retinal oedema
  2. EYLEA [Suspect]
     Active Substance: AFLIBERCEPT
     Dates: start: 20250103

REACTIONS (2)
  - Blindness unilateral [Unknown]
  - Retinal haemorrhage [Unknown]
